FAERS Safety Report 12027020 (Version 1)
Quarter: 2016Q1

REPORT INFORMATION
  Report Type: Report from Study
  Country: US (occurrence: US)
  Receive Date: 20160206
  Receipt Date: 20160206
  Transmission Date: 20160526
  Serious: No
  Sender: FDA-Public Use
  Company Number: US-ABBVIE-15K-163-1489015-00

PATIENT
  Sex: Male
  Weight: 83.99 kg

DRUGS (3)
  1. ASPIRIN. [Suspect]
     Active Substance: ASPIRIN
     Indication: ARTHRALGIA
     Route: 065
  2. HUMIRA [Suspect]
     Active Substance: ADALIMUMAB
     Indication: RHEUMATOID ARTHRITIS
     Route: 058
     Dates: start: 2014, end: 201501
  3. HUMIRA [Suspect]
     Active Substance: ADALIMUMAB
     Route: 058
     Dates: start: 201504

REACTIONS (2)
  - Arthralgia [Recovered/Resolved]
  - Blood urine present [Recovered/Resolved]

NARRATIVE: CASE EVENT DATE: 2015
